FAERS Safety Report 5961767-4 (Version None)
Quarter: 2008Q4

REPORT INFORMATION
  Report Type: 
  Country: None (occurrence: None)
  Receive Date: 20081121
  Receipt Date: 20081117
  Transmission Date: 20090506
  Serious: Yes (Death, Other)
  Sender: FDA-Public Use
  Company Number: US-MERCK-0704USA05978

PATIENT
  Age: 86 Year
  Sex: Female
  Weight: 56 kg

DRUGS (4)
  1. FOSAMAX [Suspect]
     Indication: OSTEOPOROSIS
     Route: 048
     Dates: start: 20040320, end: 20060101
  2. PREMPRO [Concomitant]
     Route: 065
  3. GLUCOSAMINE [Concomitant]
     Indication: OSTEOPOROSIS
     Route: 065
     Dates: start: 20050501, end: 20060801
  4. METOPROLOL [Concomitant]
     Indication: HYPERTENSION
     Route: 065
     Dates: start: 20050501, end: 20070101

REACTIONS (30)
  - ABNORMAL LOSS OF WEIGHT [None]
  - ANOREXIA [None]
  - ANXIETY [None]
  - CELLULITIS [None]
  - COGNITIVE DISORDER [None]
  - COUGH [None]
  - DECUBITUS ULCER [None]
  - DEHYDRATION [None]
  - DEPRESSION [None]
  - DERMATITIS ATOPIC [None]
  - DIZZINESS [None]
  - EAR PAIN [None]
  - GAIT DISTURBANCE [None]
  - HEADACHE [None]
  - HEPATIC ENZYME ABNORMAL [None]
  - HYPOCHONDRIASIS [None]
  - INSOMNIA [None]
  - NAUSEA [None]
  - OEDEMA [None]
  - OSTEOARTHRITIS [None]
  - OSTEOMYELITIS [None]
  - OSTEONECROSIS [None]
  - PAIN IN EXTREMITY [None]
  - POLYMYALGIA RHEUMATICA [None]
  - SINUSITIS [None]
  - STAPHYLOCOCCAL INFECTION [None]
  - TOOTH ABSCESS [None]
  - UPPER RESPIRATORY TRACT INFECTION [None]
  - URTICARIA [None]
  - VULVOVAGINAL CANDIDIASIS [None]
